FAERS Safety Report 9845430 (Version 1)
Quarter: 2014Q1

REPORT INFORMATION
  Report Type: Spontaneous
  Country: US (occurrence: None)
  Receive Date: 20140122
  Receipt Date: 20140122
  Transmission Date: 20141002
  Serious: Yes (Death)
  Sender: FDA-Public Use
  Company Number: POI0573201400004

PATIENT
  Age: 54 Year
  Sex: Male

DRUGS (2)
  1. NIFEDIPINE EXTENDED-RELEASE TABLETS USP 30MG, 60MG, AND 90MG (NIFEDIPINE) (TABLET) [Suspect]
     Route: 048
     Dates: start: 2012
  2. CLONIDINE [Suspect]
     Route: 048
     Dates: start: 2012

REACTIONS (2)
  - Completed suicide [None]
  - Exposure via ingestion [None]
